FAERS Safety Report 10905736 (Version 1)
Quarter: 2015Q1

REPORT INFORMATION
  Report Type: Report from Study
  Country: US (occurrence: US)
  Receive Date: 20150311
  Receipt Date: 20150311
  Transmission Date: 20150721
  Serious: Yes (Hospitalization, Other)
  Sender: FDA-Public Use
  Company Number: US-ABBVIE-15K-163-1356825-00

PATIENT
  Sex: Female

DRUGS (4)
  1. HUMIRA [Suspect]
     Active Substance: ADALIMUMAB
     Route: 065
     Dates: start: 2013, end: 2014
  2. HUMIRA [Suspect]
     Active Substance: ADALIMUMAB
     Route: 065
     Dates: start: 201412
  3. HUMIRA [Suspect]
     Active Substance: ADALIMUMAB
     Indication: RHEUMATOID ARTHRITIS
     Route: 065
     Dates: start: 2010, end: 2011
  4. HUMIRA [Suspect]
     Active Substance: ADALIMUMAB
     Route: 065
     Dates: start: 2012, end: 2013

REACTIONS (17)
  - Abdominal pain [Unknown]
  - Injection site pain [Recovered/Resolved with Sequelae]
  - Musculoskeletal pain [Unknown]
  - Peripheral swelling [Recovered/Resolved]
  - Splenomegaly [Unknown]
  - Type 1 diabetes mellitus [Recovering/Resolving]
  - Weight decreased [Unknown]
  - Hallucination [Unknown]
  - Pain in extremity [Unknown]
  - Drug intolerance [Unknown]
  - Myocardial infarction [Recovering/Resolving]
  - Gastrointestinal haemorrhage [Recovered/Resolved]
  - Disorientation [Unknown]
  - Decreased appetite [Unknown]
  - Hepatic cirrhosis [Not Recovered/Not Resolved]
  - Haematemesis [Unknown]
  - Asthenia [Unknown]

NARRATIVE: CASE EVENT DATE: 2012
